FAERS Safety Report 5707573-7 (Version None)
Quarter: 2008Q2

REPORT INFORMATION
  Report Type: 
  Country: None (occurrence: None)
  Receive Date: 20080416
  Receipt Date: 20080407
  Transmission Date: 20081010
  Serious: Yes (Other)
  Sender: FDA-Public Use
  Company Number: US-MERCK-0804USA00443

PATIENT
  Age: 8 Year
  Sex: Male
  Weight: 35 kg

DRUGS (4)
  1. SINGULAIR [Suspect]
     Indication: ASTHMA
     Route: 048
     Dates: start: 20030201, end: 20080323
  2. SINGULAIR [Suspect]
     Indication: HYPERSENSITIVITY
     Route: 048
     Dates: start: 20030201, end: 20080323
  3. CLARITIN [Concomitant]
     Indication: HYPERSENSITIVITY
     Route: 048
  4. FLOVENT [Concomitant]
     Indication: ASTHMA
     Dates: start: 20070601

REACTIONS (3)
  - ABNORMAL BEHAVIOUR [None]
  - SELF ESTEEM DECREASED [None]
  - SUICIDAL IDEATION [None]
